FAERS Safety Report 6358927-X (Version None)
Quarter: 2009Q3

REPORT INFORMATION
  Report Type: 
  Country: None (occurrence: None)
  Receive Date: 20090914
  Receipt Date: 20090904
  Transmission Date: 20100115
  Serious: Yes (Other)
  Sender: FDA-Public Use
  Company Number: CHPA2009US18251

PATIENT
  Age: 87 Year
  Sex: Male

DRUGS (4)
  1. FERROUS SULFATE TAB [Suspect]
     Indication: MINERAL SUPPLEMENTATION
     Dosage: 160 MG, QD, ORAL
     Route: 048
  2. CALCITRIOL [Concomitant]
  3. ASPIRIN [Concomitant]
  4. GINGER (ZINGIBER OFFCINALE RHIZOME) [Concomitant]

REACTIONS (2)
  - BLADDER CANCER [None]
  - RENAL DISORDER [None]
